FAERS Safety Report 5463358-0 (Version None)
Quarter: 2007Q3

REPORT INFORMATION
  Report Type: 
  Country: None (occurrence: None)
  Receive Date: 20070920
  Receipt Date: 20070912
  Transmission Date: 20080115
  Serious: Yes (Life-Threatening, Hospitalization)
  Sender: FDA-Public Use
  Company Number: GB-AMGEN-US243516

PATIENT
  Age: 61 Year
  Sex: Female
  Weight: 52.1 kg

DRUGS (1)
  1. ENBREL [Suspect]
     Indication: DRUG USE FOR UNKNOWN INDICATION
     Dosage: 50MG, FREQUENCY UNKNOWN
     Route: 058
     Dates: start: 20070608, end: 20070820

REACTIONS (1)
  - MYOCARDIAL INFARCTION [None]
